FAERS Safety Report 8261879-9 (Version None)
Quarter: 2012Q1

REPORT INFORMATION
  Report Type: 
  Country: None (occurrence: None)
  Receive Date: 20120321
  Receipt Date: 20101216
  Transmission Date: 20120608
  Serious: Yes (Hospitalization)
  Sender: FDA-Public Use
  Company Number: 2010SP065073

PATIENT
  Age: 57 Year
  Sex: Female

DRUGS (5)
  1. KLONOPIN [Concomitant]
  2. SYNTHROID [Concomitant]
  3. BENTYL [Concomitant]
  4. ZOLOFT [Concomitant]
  5. PEG-INTRON [Suspect]
     Indication: HEPATITIS C
     Dosage: 120 MCG; QW; SC, 60 MCG
     Dates: start: 20100607

REACTIONS (2)
  - ALOPECIA [None]
  - HYPERTENSION [None]
